FAERS Safety Report 9405609 (Version 2)
Quarter: 2013Q3

REPORT INFORMATION
  Report Type: Spontaneous
  Country: IT (occurrence: IT)
  Receive Date: 20130717
  Receipt Date: 20130807
  Transmission Date: 20140515
  Serious: Yes (Other)
  Sender: FDA-Public Use
  Company Number: IT-TEVA-418417ISR

PATIENT
  Age: 68 Year
  Sex: Female

DRUGS (5)
  1. OXALIPLATINO TEVA [Suspect]
     Indication: COLON CANCER
     Dosage: 205.4MG, CYCLICAL
     Route: 042
     Dates: start: 20130124
  2. XELODA [Suspect]
     Indication: COLON CANCER
     Dosage: 2528 MILLIGRAM DAILY; CYCLES OF 14DAYS, TOOKING 2528 MG EVERY DAY
     Route: 048
     Dates: start: 20130124
  3. ONDANSETRONE HIKMA [Concomitant]
     Dosage: 8 MILLIGRAM DAILY;
     Route: 042
     Dates: start: 20130124, end: 20130405
  4. RANIDIL [Concomitant]
     Dosage: 100 MILLIGRAM DAILY;
     Route: 042
     Dates: start: 20130124, end: 20130405
  5. SOLDESAM [Concomitant]
     Dosage: 8 MILLIGRAM DAILY;
     Route: 042
     Dates: start: 20130124, end: 20130405

REACTIONS (2)
  - Fatigue [Unknown]
  - Formication [Unknown]
